APPROVED DRUG PRODUCT: ACETAMINOPHEN AND CODEINE PHOSPHATE
Active Ingredient: ACETAMINOPHEN; CODEINE PHOSPHATE
Strength: 300MG;15MG
Dosage Form/Route: CAPSULE;ORAL
Application: A088537 | Product #001
Applicant: TEVA PHARMACEUTICALS USA INC
Approved: Jun 4, 1984 | RLD: No | RS: No | Type: DISCN